FAERS Safety Report 4445690-2 (Version None)
Quarter: 2004Q3

REPORT INFORMATION
  Report Type: 
  Country: None (occurrence: None)
  Receive Date: 20040902
  Receipt Date: 20040827
  Transmission Date: 20050211
  Serious: Yes (Other)
  Sender: FDA-Public Use
  Company Number: THQ2004A00720

PATIENT
  Age: 17 Year
  Sex: Male

DRUGS (3)
  1. LANSOPRAZOLE [Suspect]
     Indication: GASTROOESOPHAGEAL REFLUX DISEASE
     Dosage: SEE IMAGE
     Route: 048
     Dates: start: 20020625, end: 20030812
  2. LANSOPRAZOLE [Suspect]
     Indication: GASTROOESOPHAGEAL REFLUX DISEASE
     Dosage: SEE IMAGE
     Route: 048
     Dates: start: 20031101, end: 20040101
  3. LANSOPRAZOLE [Suspect]
     Indication: GASTROOESOPHAGEAL REFLUX DISEASE
     Dosage: SEE IMAGE
     Route: 048
     Dates: start: 20040101, end: 20040301

REACTIONS (3)
  - DIARRHOEA [None]
  - PROTEINURIA [None]
  - RENAL DISORDER [None]
